FAERS Safety Report 12684406 (Version 3)
Quarter: 2016Q3

REPORT INFORMATION
  Report Type: Report from Study
  Country: US (occurrence: US)
  Receive Date: 20160825
  Receipt Date: 20160919
  Transmission Date: 20161109
  Serious: Yes (Hospitalization, Other)
  Sender: FDA-Public Use
  Company Number: US-AEGERION PHARMACEUTICAL INC.-AEGR002387

PATIENT
  Age: 14 Year
  Sex: Female
  Weight: 46.1 kg

DRUGS (5)
  1. VITAMIN D3 [Concomitant]
     Active Substance: CHOLECALCIFEROL
     Indication: HYPOVITAMINOSIS
     Dosage: 1000 IU, QD
     Route: 048
  2. METRELEPTIN [Suspect]
     Active Substance: METRELEPTIN
     Indication: LIPODYSTROPHY ACQUIRED
     Dosage: 2.5 MG, QD
     Route: 058
     Dates: start: 20140821, end: 20141126
  3. METRELEPTIN [Suspect]
     Active Substance: METRELEPTIN
     Dosage: 3.75 MG, QD
     Route: 058
     Dates: start: 20150314, end: 201608
  4. METRELEPTIN [Suspect]
     Active Substance: METRELEPTIN
     Indication: NON-ALCOHOLIC STEATOHEPATITIS
     Dosage: 3 MG, QD
     Route: 058
     Dates: start: 20141127, end: 20150313
  5. METRELEPTIN [Suspect]
     Active Substance: METRELEPTIN
     Dosage: TAPERED OFF SINCE DATE POSITIVE NEUTRALIZING ACTIVITY REPORTED
     Route: 058
     Dates: start: 201608, end: 20160905

REACTIONS (3)
  - Type 1 diabetes mellitus [Recovering/Resolving]
  - Hypertriglyceridaemia [Recovering/Resolving]
  - Neutralising antibodies positive [Not Recovered/Not Resolved]

NARRATIVE: CASE EVENT DATE: 20160129
